FAERS Safety Report 6097097-2 (Version None)
Quarter: 2009Q1

REPORT INFORMATION
  Report Type: 
  Country: None (occurrence: None)
  Receive Date: 20090225
  Receipt Date: 20090216
  Transmission Date: 20090719
  Serious: Yes (Life-Threatening, Hospitalization)
  Sender: FDA-Public Use
  Company Number: 2009AP000533

PATIENT
  Age: 61 Year
  Sex: Male

DRUGS (2)
  1. SERTRALINE HYDROCHLORIDE [Suspect]
     Dosage: 3.1 GM; PO
     Route: 048
  2. QUETIAPINE (QUETIAPINE) [Suspect]
     Dosage: 4.3 GM; PO
     Route: 048

REACTIONS (6)
  - BODY TEMPERATURE DECREASED [None]
  - COMA [None]
  - HYPOTENSION [None]
  - INTENTIONAL OVERDOSE [None]
  - POISONING DELIBERATE [None]
  - SUICIDE ATTEMPT [None]
